FAERS Safety Report 5302231-5 (Version None)
Quarter: 2007Q2

REPORT INFORMATION
  Report Type: 
  Country: None (occurrence: None)
  Receive Date: 20070419
  Receipt Date: 20060724
  Transmission Date: 20071010
  Serious: Yes (Hospitalization)
  Sender: FDA-Public Use
  Company Number: US-GLAXOSMITHKLINE-A0601391A

PATIENT
  Age: 80 Year
  Sex: Female

DRUGS (6)
  1. ESKALITH [Suspect]
     Dosage: 300MG VARIABLE DOSE
     Route: 048
  2. LITHIUM CARBONATE [Suspect]
     Dosage: 300MG VARIABLE DOSE
     Route: 048
  3. PROTONIX [Concomitant]
  4. MULTI-VITAMIN [Concomitant]
  5. EYE DROPS [Concomitant]
  6. ASCORBIC ACID [Concomitant]

REACTIONS (3)
  - DRUG INEFFECTIVE [None]
  - MANIA [None]
  - MENTAL DISORDER [None]
